FAERS Safety Report 18204918 (Version 1)
Quarter: 2020Q3

REPORT INFORMATION
  Report Type: Spontaneous
  Country: US (occurrence: US)
  Receive Date: 20200827
  Receipt Date: 20200827
  Transmission Date: 20201103
  Serious: Yes (Disabling, Other)
  Sender: FDA-Public Use
  Company Number: US-PURDUE-USA-2020-0160746

PATIENT
  Sex: Female

DRUGS (7)
  1. OXYCONTIN [Suspect]
     Active Substance: OXYCODONE HYDROCHLORIDE
     Dosage: 80 MG, HS
     Route: 048
  2. OXYCONTIN [Suspect]
     Active Substance: OXYCODONE HYDROCHLORIDE
     Dosage: 40 MG, TID
     Route: 048
  3. OXYCONTIN [Suspect]
     Active Substance: OXYCODONE HYDROCHLORIDE
     Dosage: 40 MG, TWICE
     Route: 048
  4. OXYFAST [Suspect]
     Active Substance: OXYCODONE
     Indication: BREAKTHROUGH PAIN
     Dosage: UNK
     Route: 065
     Dates: start: 1997, end: 2008
  5. AMBIEN [Concomitant]
     Active Substance: ZOLPIDEM TARTRATE
     Indication: PRODUCT USED FOR UNKNOWN INDICATION
     Dosage: 10 MG AT BEDTIME, PRN
     Route: 065
  6. ESTRACE [Concomitant]
     Active Substance: ESTRADIOL
     Indication: OESTROGEN REPLACEMENT THERAPY
     Dosage: 2 MG, UNK
     Route: 065
  7. OXYCONTIN [Suspect]
     Active Substance: OXYCODONE HYDROCHLORIDE
     Indication: BREAKTHROUGH PAIN
     Dosage: 80 MG, TID
     Route: 048
     Dates: start: 1997, end: 2008

REACTIONS (40)
  - Ovarian cancer [Unknown]
  - Arthralgia [Unknown]
  - Hypoaesthesia [Unknown]
  - Dyspepsia [Unknown]
  - Gastrointestinal disorder [Unknown]
  - Rectal lesion [Unknown]
  - Myalgia [Unknown]
  - Narcotic bowel syndrome [Unknown]
  - Depression [Unknown]
  - Radiculopathy [Unknown]
  - Pelvic pain [Unknown]
  - Fatigue [Unknown]
  - Uterine leiomyoma [Unknown]
  - Haemorrhage [Unknown]
  - Peroneal nerve palsy [Not Recovered/Not Resolved]
  - Gait disturbance [Unknown]
  - Kyphosis [Unknown]
  - Tenderness [Unknown]
  - Insomnia [Unknown]
  - Ulcer [Unknown]
  - Withdrawal syndrome [Unknown]
  - Sitting disability [Unknown]
  - Anxiety [Unknown]
  - Gastroenteritis [Recovering/Resolving]
  - Overdose [Unknown]
  - Drug dependence [Unknown]
  - Syncope [Unknown]
  - Sleep disorder [Unknown]
  - Burning sensation [Unknown]
  - Bedridden [Unknown]
  - Hot flush [Unknown]
  - Disability [Unknown]
  - Back pain [Not Recovered/Not Resolved]
  - Pain in extremity [Unknown]
  - Sensorimotor disorder [Unknown]
  - Gastrooesophageal reflux disease [Unknown]
  - Pain [Unknown]
  - Haemorrhoids thrombosed [Unknown]
  - Asthenia [Unknown]
  - Pyrexia [Unknown]
